FAERS Safety Report 9362807 (Version 2)
Quarter: 2013Q3

REPORT INFORMATION
  Report Type: Spontaneous
  Country: CA (occurrence: CA)
  Receive Date: 20130624
  Receipt Date: 20130916
  Transmission Date: 20140515
  Serious: Yes (Other)
  Sender: FDA-Public Use
  Company Number: CA-AMGEN-CANSP2013035556

PATIENT
  Age: 48 Year
  Sex: Female

DRUGS (7)
  1. ENBREL [Suspect]
     Indication: RHEUMATOID ARTHRITIS
     Dosage: 50 MG, QWK
     Route: 058
     Dates: start: 20130502, end: 201307
  2. SULFASALAZINE [Concomitant]
     Indication: RHEUMATOID ARTHRITIS
     Dosage: 1000 UNK, BID
     Route: 048
  3. PLAQUENIL                          /00072602/ [Concomitant]
     Dosage: UNK
  4. CLOFENAC                           /00372302/ [Concomitant]
     Indication: RHEUMATOID ARTHRITIS
     Dosage: 50 UNK, BID
  5. CALCIUM [Concomitant]
     Dosage: UNK
  6. HYDROXYCHLOROQUINE [Concomitant]
     Indication: RHEUMATOID ARTHRITIS
     Dosage: 200 UNK, QD
     Route: 048
  7. TELMISARTAN [Concomitant]
     Indication: HYPERTENSION
     Dosage: 12.5 UNK, QD
     Route: 048

REACTIONS (7)
  - Visual impairment [Recovered/Resolved]
  - Injection site pain [Recovered/Resolved]
  - Anxiety [Recovered/Resolved]
  - Nausea [Recovered/Resolved]
  - Headache [Recovered/Resolved]
  - Pruritus generalised [Recovered/Resolved]
  - Injection site haemorrhage [Recovered/Resolved]
